FAERS Safety Report 23549582 (Version 1)
Quarter: 2024Q1

REPORT INFORMATION
  Report Type: Report from Study
  Country: US (occurrence: US)
  Receive Date: 20240221
  Receipt Date: 20240221
  Transmission Date: 20240410
  Serious: Yes (Death, Hospitalization, Other)
  Sender: FDA-Public Use
  Company Number: US-SA-SAC20231016000971

PATIENT
  Age: 80 Year
  Sex: Female

DRUGS (3)
  1. DUPILUMAB [Suspect]
     Active Substance: DUPILUMAB
     Indication: Neurodermatitis
     Dosage: 300 MG, QOW
     Route: 058
     Dates: start: 20230516, end: 202307
  2. METHOTREXATE [Concomitant]
     Active Substance: METHOTREXATE
     Indication: Neurodermatitis
  3. PREDNISONE [Concomitant]
     Active Substance: PREDNISONE
     Indication: Pruritus
     Dosage: UNK
     Dates: start: 20220429, end: 20230427

REACTIONS (5)
  - Death [Fatal]
  - Clostridium difficile infection [Unknown]
  - Nausea [Unknown]
  - Muscle spasms [Unknown]
  - Asthenia [Unknown]

NARRATIVE: CASE EVENT DATE: 20230824
